FAERS Safety Report 19656277 (Version 1)
Quarter: 2021Q3

REPORT INFORMATION
  Report Type: Spontaneous
  Country: US (occurrence: US)
  Receive Date: 20210803
  Receipt Date: 20210803
  Transmission Date: 20211014
  Serious: Yes (Hospitalization)
  Sender: FDA-Public Use
  Company Number: None

PATIENT
  Age: 78 Year
  Sex: Male

DRUGS (11)
  1. BENZONATATE. [Concomitant]
     Active Substance: BENZONATATE
  2. BREO ELLIPTA [Concomitant]
     Active Substance: FLUTICASONE FUROATE\VILANTEROL TRIFENATATE
  3. DOXYCYC MONO [Concomitant]
     Active Substance: DOXYCYCLINE
  4. METOPROLOL SUC ER [Concomitant]
  5. ALBUTEROL NEB [Concomitant]
     Active Substance: ALBUTEROL
  6. ESBRIET [Suspect]
     Active Substance: PIRFENIDONE
     Indication: IDIOPATHIC PULMONARY FIBROSIS
     Route: 048
     Dates: start: 20190328
  7. CEFDINIR. [Concomitant]
     Active Substance: CEFDINIR
  8. FUROSEMIDE. [Concomitant]
     Active Substance: FUROSEMIDE
  9. ACIDOPHILUS [Concomitant]
     Active Substance: LACTOBACILLUS ACIDOPHILUS
  10. AZITHROMYCIN ANHYDROUS. [Concomitant]
     Active Substance: AZITHROMYCIN ANHYDROUS
  11. PREDISONE [Concomitant]
     Active Substance: PREDNISONE

REACTIONS (4)
  - Atrial fibrillation [None]
  - Dyspnoea [None]
  - Heart rate increased [None]
  - Therapy interrupted [None]

NARRATIVE: CASE EVENT DATE: 20210720
